FAERS Safety Report 4337240-6 (Version None)
Quarter: 2004Q2

REPORT INFORMATION
  Report Type: 
  Country: None (occurrence: None)
  Receive Date: 20040405
  Receipt Date: 20040128
  Transmission Date: 20050107
  Serious: Yes (Life-Threatening)
  Sender: FDA-Public Use
  Company Number: 200411984BWH

PATIENT

DRUGS (1)
  1. AVELOX [Suspect]
     Dosage: 400 MG, INTRAVENOUS
     Route: 042
     Dates: start: 20030923

REACTIONS (4)
  - ANAPHYLACTIC REACTION [None]
  - CYANOSIS [None]
  - RASH [None]
  - RESPIRATORY ARREST [None]
